FAERS Safety Report 5843444-3 (Version None)
Quarter: 2008Q3

REPORT INFORMATION
  Report Type: 
  Country: None (occurrence: None)
  Receive Date: 20080813
  Receipt Date: 20080805
  Transmission Date: 20090109
  Serious: Yes (Hospitalization)
  Sender: FDA-Public Use
  Company Number: GB-WATSON-2008-04742

PATIENT
  Age: 25 Year
  Sex: Male

DRUGS (1)
  1. PENICILLIN G POTASSIUM [Suspect]
     Indication: TONSILLITIS STREPTOCOCCAL
     Dosage: UNK
     Route: 065
     Dates: start: 20080101, end: 20080101

REACTIONS (2)
  - MYOPERICARDITIS [None]
  - STREPTOCOCCAL INFECTION [None]
